FAERS Safety Report 8446442 (Version 3)
Quarter: 2012Q4

REPORT INFORMATION
  Report Type: 
  Country: BR (occurrence: BR)
  Receive Date: 20120307
  Receipt Date: 20120907
  Transmission Date: 20130627
  Serious: Yes (Other)
  Sender: FDA-Public Use
  Company Number: BR-PFIZER INC-2012048069

PATIENT
  Age: 81 Year
  Sex: Male
  Weight: 62 kg

DRUGS (7)
  1. SUTENT [Suspect]
     Indication: METASTATIC RENAL CELL CARCINOMA
     Dosage: 50 mg, 1x/day (cycle 4x2)
     Route: 048
     Dates: start: 20120211, end: 20120820
  2. SUTENT [Suspect]
     Indication: RENAL CELL CARCINOMA
  3. ATACAND [Concomitant]
     Indication: HYPERTENSION
     Dosage: 16 mg, 1x/day
  4. NATRILIX - SLOW RELEASE [Concomitant]
     Indication: HYPERTENSION
     Dosage: 1.2 mg, 1x/day
  5. GLIMEPIRIDE [Concomitant]
     Indication: DIABETES MELLITUS
     Dosage: 2 mg, fasting
  6. METFORMIN [Concomitant]
     Indication: DIABETES MELLITUS
     Dosage: 1700 mg, 3x/day (half tablet of 850 mg at breakfast and at dinner and 1 tablet of 850 mg at lunch)
  7. RIVOTRIL [Concomitant]
     Dosage: 2 mg, 1x/day

REACTIONS (11)
  - Tongue haemorrhage [Unknown]
  - Aphagia [Unknown]
  - Rash [Recovering/Resolving]
  - Decreased appetite [Not Recovered/Not Resolved]
  - Tongue discolouration [Not Recovered/Not Resolved]
  - Tongue disorder [Not Recovered/Not Resolved]
  - Nausea [Unknown]
  - Vomiting [Unknown]
  - Ageusia [Not Recovered/Not Resolved]
  - Glossodynia [Not Recovered/Not Resolved]
  - Asthenia [Unknown]
